FAERS Safety Report 8949737 (Version 1)
Quarter: 2012Q4

REPORT INFORMATION
  Report Type: Report from Study
  Country: DZ (occurrence: DZ)
  Receive Date: 20121206
  Receipt Date: 20121206
  Transmission Date: 20130627
  Serious: Yes (Death)
  Sender: FDA-Public Use
  Company Number: DZ-ROCHE-1164012

PATIENT
  Age: 78 Year

DRUGS (1)
  1. RITUXIMAB [Suspect]
     Indication: LYMPHOCYTIC LEUKAEMIA
     Route: 065

REACTIONS (7)
  - Cerebrovascular accident [Fatal]
  - Constipation [Unknown]
  - Anaemia [Recovering/Resolving]
  - Nausea [Unknown]
  - Leukopenia [Recovering/Resolving]
  - Vomiting [Unknown]
  - Thrombocytopenia [Recovered/Resolved]
